FAERS Safety Report 18103143 (Version 4)
Quarter: 2020Q3

REPORT INFORMATION
  Report Type: Report from Study
  Country: DE (occurrence: DE)
  Receive Date: 20200803
  Receipt Date: 20200827
  Transmission Date: 20201103
  Serious: Yes (Hospitalization)
  Sender: FDA-Public Use
  Company Number: DE-BRISTOL-MYERS SQUIBB COMPANY-BMS-2020-059861

PATIENT
  Age: 77 Year
  Sex: Male

DRUGS (17)
  1. GEMCITABINE HYDROCHLORIDE. [Suspect]
     Active Substance: GEMCITABINE HYDROCHLORIDE
     Dosage: 1326 MILLIGRAM, QCYCLE
     Route: 042
     Dates: start: 20200804
  2. EUTHYROX [Concomitant]
     Active Substance: LEVOTHYROXINE SODIUM
     Indication: GOITRE
     Dosage: 125 MICROGRAM, QD
     Route: 048
     Dates: start: 2019
  3. PANTOZOLE [Concomitant]
     Active Substance: PANTOPRAZOLE SODIUM
     Indication: PROPHYLAXIS
     Dosage: 40 MILLIGRAM, QD
     Route: 048
     Dates: start: 202007
  4. GEMCITABINE HYDROCHLORIDE. [Suspect]
     Active Substance: GEMCITABINE HYDROCHLORIDE
     Indication: NON-HODGKIN^S LYMPHOMA
     Dosage: 1798MG, 1/CYCLE
     Route: 042
     Dates: start: 20200710
  5. CANDESARTAN. [Concomitant]
     Active Substance: CANDESARTAN
     Indication: HYPERTENSION
     Dosage: 8 MILLIGRAM, QD
     Route: 048
     Dates: start: 202007
  6. OXALIPLATIN. [Suspect]
     Active Substance: OXALIPLATIN
     Indication: NON-HODGKIN^S LYMPHOMA
     Dosage: 180MG, 1/CYCLE
     Route: 042
     Dates: start: 20200710, end: 20200710
  7. ASPIRIN. [Concomitant]
     Active Substance: ASPIRIN
     Indication: PROPHYLAXIS
     Dosage: 100 MILLIGRAM, QD
     Route: 048
     Dates: start: 2013
  8. PEGFILGRASTIM [Suspect]
     Active Substance: PEGFILGRASTIM
     Indication: NON-HODGKIN^S LYMPHOMA
     Dosage: 6MG, 1/CYCLE
     Route: 058
     Dates: start: 20200713, end: 20200713
  9. BISOPROLOL [Concomitant]
     Active Substance: BISOPROLOL
     Indication: HYPERTENSION
     Dosage: 10 MILLIGRAM, QD
     Route: 048
     Dates: start: 2000
  10. JODID [Concomitant]
     Active Substance: IODINE
     Indication: GOITRE
     Dosage: 200 MILLIGRAM, QD
     Route: 048
     Dates: start: 2016
  11. ALLOPURINOL. [Concomitant]
     Active Substance: ALLOPURINOL
     Indication: HYPERURICAEMIA
     Dosage: 100 MILLIGRAM, QD
     Route: 048
     Dates: start: 202007
  12. NIVOLUMAB [Suspect]
     Active Substance: NIVOLUMAB
     Dosage: 199 MILLIGRAM, QCYCLE
     Route: 042
     Dates: start: 20200804
  13. CARMEN [LERCANIDIPINE HYDROCHLORIDE] [Concomitant]
     Active Substance: LERCANIDIPINE HYDROCHLORIDE
     Indication: HYPERTENSION
     Dosage: 10 MILLIGRAM, BID
     Route: 048
     Dates: start: 2000
  14. NIVOLUMAB [Suspect]
     Active Substance: NIVOLUMAB
     Indication: NON-HODGKIN^S LYMPHOMA
     Dosage: 201MG, 1XCYCLE
     Route: 042
     Dates: start: 20200709, end: 20200709
  15. OXALIPLATIN. [Suspect]
     Active Substance: OXALIPLATIN
     Dosage: 133 MILLIGRAM, QCYCLE
     Route: 042
     Dates: start: 20200804
  16. ACICLOVIR [Concomitant]
     Active Substance: ACYCLOVIR
     Indication: ANTIVIRAL PROPHYLAXIS
     Dosage: 400 MILLIGRAM, QID
     Route: 048
     Dates: start: 20200709
  17. COTRIM FORTE [Concomitant]
     Active Substance: SULFAMETHOXAZOLE\TRIMETHOPRIM
     Indication: INFECTION PROPHYLAXIS
     Dosage: 960 MILLIGRAM
     Route: 048
     Dates: start: 20200709

REACTIONS (2)
  - Febrile infection [Recovered/Resolved]
  - Pyrexia [Recovered/Resolved]

NARRATIVE: CASE EVENT DATE: 20200724
